FAERS Safety Report 17289065 (Version 1)
Quarter: 2020Q1

REPORT INFORMATION
  Report Type: Spontaneous
  Country: US (occurrence: US)
  Receive Date: 20200120
  Receipt Date: 20200120
  Transmission Date: 20200409
  Serious: Yes (Hospitalization, Other)
  Sender: FDA-Public Use
  Company Number: US-MYLANLABS-2020M1005563

PATIENT
  Age: 66 Year
  Sex: Female

DRUGS (3)
  1. FONDAPARINUX [Suspect]
     Active Substance: FONDAPARINUX
     Indication: ANTICOAGULANT THERAPY
     Dosage: UNK
  2. DILTIAZEM. [Suspect]
     Active Substance: DILTIAZEM
     Indication: ATRIAL FIBRILLATION
     Dosage: UNK
  3. AMIODARONE                         /00133102/ [Suspect]
     Active Substance: AMIODARONE
     Indication: ATRIAL FIBRILLATION
     Dosage: UNK

REACTIONS (2)
  - Hepatic haematoma [Not Recovered/Not Resolved]
  - Septic shock [Unknown]
